FAERS Safety Report 6758412-7 (Version None)
Quarter: 2010Q2

REPORT INFORMATION
  Report Type: 
  Country: None (occurrence: None)
  Receive Date: 20100607
  Receipt Date: 20100601
  Transmission Date: 20101027
  Serious: Yes (Death, Life-Threatening, Hospitalization, Other)
  Sender: FDA-Public Use
  Company Number: JP-ROCHE-702152

PATIENT
  Sex: Female
  Weight: 50 kg

DRUGS (7)
  1. PEGASYS [Suspect]
     Indication: HEPATITIS C
     Route: 058
     Dates: start: 20100203, end: 20100428
  2. LOSARTAN POTASSIUM AND HYDROCHLOROTHIAZIDE [Concomitant]
     Route: 048
     Dates: start: 20080723
  3. ATELEC [Concomitant]
     Route: 048
     Dates: start: 20080723
  4. ANGINAL [Concomitant]
     Route: 048
     Dates: start: 20060122
  5. DEPAS [Concomitant]
     Route: 048
  6. MUCOSTA [Concomitant]
     Route: 048
  7. MUCOSOLVAN [Concomitant]
     Dosage: DRUG NAME: AMBROXOL HYDROCHLORIDE
     Route: 048
     Dates: start: 20090817

REACTIONS (7)
  - HEADACHE [None]
  - MALAISE [None]
  - NASOPHARYNGITIS [None]
  - PRURITUS [None]
  - RENAL FAILURE [None]
  - SEPSIS [None]
  - SWELLING FACE [None]
